FAERS Safety Report 13587406 (Version 1)
Quarter: 2017Q2

REPORT INFORMATION
  Report Type: Spontaneous
  Country: US (occurrence: US)
  Receive Date: 20170526
  Receipt Date: 20170526
  Transmission Date: 20170830
  Serious: Yes (Other)
  Sender: FDA-Public Use
  Company Number: US-PFIZER INC-2017231309

PATIENT
  Sex: Female

DRUGS (2)
  1. XANAX XR [Suspect]
     Active Substance: ALPRAZOLAM
     Dosage: 0.5 MG, 3X/DAY
  2. XANAX XR [Suspect]
     Active Substance: ALPRAZOLAM
     Indication: ANXIETY
     Dosage: 0.5 MG, 2X/DAY

REACTIONS (2)
  - Drug effect incomplete [Unknown]
  - Ovarian cancer [Unknown]

NARRATIVE: CASE EVENT DATE: 2014
